FAERS Safety Report 6305063-4 (Version None)
Quarter: 2009Q3

REPORT INFORMATION
  Report Type: 
  Country: None (occurrence: None)
  Receive Date: 20090811
  Receipt Date: 20090730
  Transmission Date: 20100115
  Serious: Yes (Other)
  Sender: FDA-Public Use
  Company Number: US-PFIZER INC-2009248360

PATIENT
  Age: 92 Year
  Sex: Female

DRUGS (2)
  1. XALATAN [Suspect]
     Indication: GLAUCOMA
  2. COSOPT [Suspect]
     Indication: GLAUCOMA

REACTIONS (2)
  - CEREBROVASCULAR ACCIDENT [None]
  - TREMOR [None]
